FAERS Safety Report 18912762 (Version 2)
Quarter: 2021Q1

REPORT INFORMATION
  Report Type: Report from Study
  Country: US (occurrence: US)
  Receive Date: 20210219
  Receipt Date: 20210308
  Transmission Date: 20210420
  Serious: No
  Sender: FDA-Public Use
  Company Number: NVSC2021US033095

PATIENT
  Sex: Female

DRUGS (3)
  1. ENTRESTO [Suspect]
     Active Substance: SACUBITRIL\VALSARTAN
     Dosage: 100 MG (49/51 MG IN THE EVENING)
     Route: 065
  2. ENTRESTO [Suspect]
     Active Substance: SACUBITRIL\VALSARTAN
     Dosage: 50 MG (24/26 MG, 1.5 TAB IN MORNING)
     Route: 065
     Dates: start: 20201222
  3. ENTRESTO [Suspect]
     Active Substance: SACUBITRIL\VALSARTAN
     Indication: PRODUCT USED FOR UNKNOWN INDICATION
     Dosage: 50 MG, BID (24/26MG, 1.5 TAB)
     Route: 048
     Dates: start: 20201222

REACTIONS (3)
  - Product dose omission issue [Unknown]
  - Wrong technique in product usage process [Unknown]
  - Product prescribing issue [Unknown]
